FAERS Safety Report 10145960 (Version 1)
Quarter: 2014Q2

REPORT INFORMATION
  Report Type: Spontaneous
  Country: FR (occurrence: FR)
  Receive Date: 20140501
  Receipt Date: 20140501
  Transmission Date: 20141212
  Serious: Yes (Life-Threatening)
  Sender: FDA-Public Use
  Company Number: PHHY2014FR052298

PATIENT
  Age: 39 Year
  Sex: Female

DRUGS (7)
  1. GILENYA [Suspect]
     Indication: MULTIPLE SCLEROSIS
     Dosage: QD
     Route: 048
     Dates: start: 20130917, end: 20140219
  2. TYSABRI [Suspect]
     Dosage: 300 MG, EVERY 4 WEEKS
     Route: 042
     Dates: start: 20101213, end: 20130805
  3. METHYLPREDNISOLONE [Concomitant]
     Dosage: 1 G, EVERY MONTH
     Route: 042
     Dates: start: 20130812, end: 20131115
  4. CERIS [Concomitant]
     Dosage: UNK UKN, BID
  5. SEROPLEX [Concomitant]
     Dosage: UNK UKN, QD
  6. ALPRAZOLAM [Concomitant]
     Dosage: 0.25 MG, QD
  7. UVEDOSE [Concomitant]

REACTIONS (1)
  - Invasive ductal breast carcinoma [Not Recovered/Not Resolved]
